FAERS Safety Report 7425146-5 (Version None)
Quarter: 2011Q2

REPORT INFORMATION
  Report Type: 
  Country: None (occurrence: None)
  Receive Date: 20110412
  Receipt Date: 20110331
  Transmission Date: 20111010
  Serious: No
  Sender: FDA-Public Use
  Company Number: US-1185636

PATIENT
  Age: 29 Year
  Sex: Female

DRUGS (1)
  1. PATANASE [Suspect]
     Dosage: (NASAL)
     Route: 045

REACTIONS (2)
  - EMOTIONAL DISORDER [None]
  - DEPRESSED MOOD [None]
